FAERS Safety Report 7370998-0 (Version None)
Quarter: 2011Q1

REPORT INFORMATION
  Report Type: 
  Country: None (occurrence: None)
  Receive Date: 20110321
  Receipt Date: 20110321
  Transmission Date: 20110831
  Serious: Yes (Other)
  Sender: FDA-Public Use
  Company Number: None

PATIENT
  Age: 49 Year
  Sex: Female
  Weight: 67.1324 kg

DRUGS (1)
  1. LATISSE [Suspect]
     Indication: MADAROSIS
     Dosage: ONCE ON TOP LID LINE ONLY DAILY
     Dates: start: 20110307, end: 20110310

REACTIONS (3)
  - EYELID OEDEMA [None]
  - EYELIDS PRURITUS [None]
  - ERYTHEMA OF EYELID [None]
